FAERS Safety Report 4570724-4 (Version None)
Quarter: 2005Q1

REPORT INFORMATION
  Report Type: 
  Country: None (occurrence: None)
  Receive Date: 20050202
  Receipt Date: 20050121
  Transmission Date: 20050727
  Serious: Yes (Other)
  Sender: FDA-Public Use
  Company Number: GBWYE365424JAN05

PATIENT
  Age: 1 Year
  Sex: Female

DRUGS (3)
  1. ADVIL [Suspect]
     Indication: PYREXIA
     Dosage: 5MG/KG, ORAL
     Route: 048
  2. ANADIN PARACETAMOL (ACETAMINOPHEN, 0) [Suspect]
     Indication: PYREXIA
     Dosage: 15MG/KG, ORAL
     Route: 048
  3. CEFUROXIME [Concomitant]

REACTIONS (1)
  - HYPOTHERMIA [None]
